FAERS Safety Report 5191281-8 (Version None)
Quarter: 2006Q4

REPORT INFORMATION
  Report Type: 
  Country: None (occurrence: None)
  Receive Date: 20061220
  Receipt Date: 20061220
  Transmission Date: 20070319
  Serious: Yes (Hospitalization)
  Sender: FDA-Public Use
  Company Number: None

PATIENT
  Age: 74 Year
  Sex: Male

DRUGS (4)
  1. ZOSYN [Suspect]
     Indication: PNEUMONIA
     Dates: start: 20060904, end: 20060908
  2. ZOSYN [Suspect]
     Dates: start: 20060928, end: 20061012
  3. HEPARIN [Concomitant]
  4. LINEZOLID [Concomitant]

REACTIONS (2)
  - SEPSIS [None]
  - THROMBOCYTOPENIA [None]
